FAERS Safety Report 8924047 (Version 1)
Quarter: 2012Q4

REPORT INFORMATION
  Report Type: Spontaneous
  Country: BR (occurrence: None)
  Receive Date: 20121116
  Receipt Date: 20121116
  Transmission Date: 20130627
  Serious: Yes (Hospitalization)
  Sender: FDA-Public Use
  Company Number: DSJ-2012-21006

PATIENT
  Age: 6 Year
  Sex: Female

DRUGS (3)
  1. BENICAR [Suspect]
     Indication: HYPERTENSION
     Dosage: (1 in 1 D).
     Route: 048
     Dates: start: 201111
  2. FISH OIL [Concomitant]
  3. MEDICINE FOR HORMONAL DISORDER (HORMONES AND RELATED AGENTS) [Concomitant]

REACTIONS (1)
  - Thyroid operation [None]
